FAERS Safety Report 5507152-0 (Version None)
Quarter: 2007Q4

REPORT INFORMATION
  Report Type: 
  Country: None (occurrence: None)
  Receive Date: 20071102
  Receipt Date: 20071024
  Transmission Date: 20080405
  Serious: Yes (Death, Hospitalization)
  Sender: FDA-Public Use
  Company Number: D-07-0079

PATIENT
  Age: 78 Year
  Sex: Male

DRUGS (5)
  1. JANTOVEN [Suspect]
     Indication: ATRIAL FIBRILLATION
     Dosage: GENERALLY 5 TO 7 MG (VARIED WITH INR), QD, PO
     Route: 048
     Dates: start: 20070101, end: 20070305
  2. JANTOVEN [Suspect]
     Indication: ATRIAL FIBRILLATION
     Dosage: GENERALLY 5 TO 7 MG (VARIED WITH INR), QD, PO
     Route: 048
     Dates: start: 20070101, end: 20070305
  3. WARFARIN SODIUM [Suspect]
     Indication: ATRIAL FIBRILLATION
     Dosage: PO
     Route: 048
     Dates: start: 20070306
  4. ALLOPURINOL [Concomitant]
  5. ACIPHEX [Concomitant]

REACTIONS (3)
  - CEREBROVASCULAR ACCIDENT [None]
  - INTERNATIONAL NORMALISED RATIO DECREASED [None]
  - PHARMACEUTICAL PRODUCT COMPLAINT [None]
